FAERS Safety Report 14406798 (Version 1)
Quarter: 2018Q1

REPORT INFORMATION
  Report Type: Spontaneous
  Country: FR (occurrence: FR)
  Receive Date: 20180118
  Receipt Date: 20180118
  Transmission Date: 20180509
  Serious: Yes (Death, Other)
  Sender: FDA-Public Use
  Company Number: FR-BRISTOL-MYERS SQUIBB COMPANY-BMS-2018-003621

PATIENT
  Sex: Male

DRUGS (2)
  1. RULID [Interacting]
     Active Substance: ROXITHROMYCIN
     Indication: BRONCHITIS
     Route: 065
  2. ELIQUIS [Suspect]
     Active Substance: APIXABAN
     Indication: PRODUCT USED FOR UNKNOWN INDICATION
     Dosage: NOT AVAILABLE
     Route: 065

REACTIONS (3)
  - Myocardial infarction [Fatal]
  - Drug interaction [Unknown]
  - Bronchitis [Unknown]
